FAERS Safety Report 9734030 (Version 3)
Quarter: 2013Q4

REPORT INFORMATION
  Report Type: Spontaneous
  Country: FR (occurrence: FR)
  Receive Date: 20131205
  Receipt Date: 20131221
  Transmission Date: 20140711
  Serious: Yes (Other)
  Sender: FDA-Public Use
  Company Number: FR-ASTRAZENECA-2013SE81895

PATIENT
  Age: 82 Year
  Sex: Female
  Weight: 75 kg

DRUGS (5)
  1. FASLODEX [Suspect]
     Indication: BREAST CANCER
     Route: 030
     Dates: start: 2010
  2. LEVOTHYROX [Concomitant]
     Indication: HYPOTHYROIDISM
  3. AROMASINE [Concomitant]
     Dosage: FOR SEVERAL YEARS
     Route: 048
  4. STILNOX [Concomitant]
     Indication: INSOMNIA
     Route: 048
  5. KARDEGIC [Concomitant]
     Route: 048
     Dates: start: 201311

REACTIONS (8)
  - Metastases to eye [Not Recovered/Not Resolved]
  - Retinal detachment [Not Recovered/Not Resolved]
  - Blindness unilateral [Not Recovered/Not Resolved]
  - Back pain [Not Recovered/Not Resolved]
  - Myalgia [Not Recovered/Not Resolved]
  - Dizziness [Recovering/Resolving]
  - Nausea [Not Recovered/Not Resolved]
  - Injection site pain [Not Recovered/Not Resolved]
